FAERS Safety Report 22644856 (Version 1)
Quarter: 2023Q2

REPORT INFORMATION
  Report Type: Spontaneous
  Country: PL (occurrence: PL)
  Receive Date: 20230627
  Receipt Date: 20230627
  Transmission Date: 20230722
  Serious: Yes (Life-Threatening, Hospitalization, Other)
  Sender: FDA-Public Use
  Company Number: PL-PFIZER INC-202300228434

PATIENT
  Age: 38 Year
  Sex: Female

DRUGS (16)
  1. ADRIAMYCIN [Suspect]
     Active Substance: DOXORUBICIN HYDROCHLORIDE
     Dosage: UNK, 4 CYCLIC
     Dates: start: 202207, end: 202211
  2. CYTARABINE [Suspect]
     Active Substance: CYTARABINE
     Indication: Diffuse large B-cell lymphoma
     Dosage: UNK
     Dates: start: 202210
  3. RITUXIMAB [Suspect]
     Active Substance: RITUXIMAB
     Indication: Diffuse large B-cell lymphoma
     Dosage: UNK, 4 CYCLIC
     Dates: start: 202207, end: 202211
  4. METHYLPREDNISOLONE [Suspect]
     Active Substance: METHYLPREDNISOLONE
     Indication: Diffuse large B-cell lymphoma
     Dosage: 96 MG, DAILY
     Dates: start: 202208
  5. CARBOPLATIN [Suspect]
     Active Substance: CARBOPLATIN
     Indication: Diffuse large B-cell lymphoma
     Dosage: UNK, 4 CYCLIC
     Dates: start: 202207, end: 202211
  6. CYCLOPHOSPHAMIDE [Suspect]
     Active Substance: CYCLOPHOSPHAMIDE
     Indication: Diffuse large B-cell lymphoma
     Dosage: UNK, 4 CYCLIC
     Dates: start: 202207, end: 202211
  7. PREDNISONE [Suspect]
     Active Substance: PREDNISONE
     Indication: Diffuse large B-cell lymphoma
     Dosage: UNK, 4 CYCLIC
     Dates: start: 202207, end: 202211
  8. VINCRISTINE SULFATE [Suspect]
     Active Substance: VINCRISTINE SULFATE
     Indication: Diffuse large B-cell lymphoma
     Dosage: UNK, 4 CYCLIC
     Dates: start: 202207, end: 202211
  9. DEXAMETHASONE [Suspect]
     Active Substance: DEXAMETHASONE
     Indication: Diffuse large B-cell lymphoma
     Dosage: UNK, 1 CYCLIC
     Dates: start: 202210
  10. IFOSFAMIDE [Suspect]
     Active Substance: IFOSFAMIDE
     Indication: Diffuse large B-cell lymphoma
     Dosage: UNK, 4 CYCLIC
     Dates: start: 202207, end: 202211
  11. ETOPOSIDE [Suspect]
     Active Substance: ETOPOSIDE
     Indication: Diffuse large B-cell lymphoma
     Dosage: UNK, 4 CYCLIC
     Dates: start: 202207, end: 202211
  12. POLATUZUMAB VEDOTIN [Suspect]
     Active Substance: POLATUZUMAB VEDOTIN
     Indication: Diffuse large B-cell lymphoma
     Dosage: UNK
     Dates: start: 202209
  13. BENDAMUSTINE [Suspect]
     Active Substance: BENDAMUSTINE
     Indication: Diffuse large B-cell lymphoma
     Dosage: UNK
     Dates: start: 202209
  14. GEMCITABINE [Suspect]
     Active Substance: GEMCITABINE
     Indication: Diffuse large B-cell lymphoma
     Dosage: UNK, 1 CYCLIC
     Dates: start: 202211
  15. OXALIPLATIN [Suspect]
     Active Substance: OXALIPLATIN
     Indication: Diffuse large B-cell lymphoma
     Dosage: UNK, 1 CYCLIC
     Dates: start: 202211
  16. CISPLATIN [Suspect]
     Active Substance: CISPLATIN
     Dosage: UNK
     Dates: start: 202210

REACTIONS (3)
  - Klebsiella sepsis [Unknown]
  - Cytokine release syndrome [Unknown]
  - Neurotoxicity [Unknown]

NARRATIVE: CASE EVENT DATE: 20221101
